FAERS Safety Report 9698067 (Version 5)
Quarter: 2015Q3

REPORT INFORMATION
  Report Type: Spontaneous
  Country: US (occurrence: US)
  Receive Date: 20131120
  Receipt Date: 20150929
  Transmission Date: 20151125
  Serious: Yes (Life-Threatening, Hospitalization, Other)
  Sender: FDA-Public Use
  Company Number: US-BAYER-2013-139145

PATIENT
  Age: 25 Year
  Sex: Female
  Weight: 62.59 kg

DRUGS (11)
  1. HYDROCODONE [Concomitant]
     Active Substance: HYDROCODONE
     Indication: TOOTHACHE
     Dosage: UNK
     Dates: start: 201301
  2. MOTRIN [Concomitant]
     Active Substance: IBUPROFEN
     Indication: PELVIC PAIN
     Dosage: UNK
     Dates: start: 201202, end: 201212
  3. ROBAXIN [Concomitant]
     Active Substance: METHOCARBAMOL
     Indication: MIGRAINE
     Dosage: UNK
     Dates: start: 2013
  4. MOTRIN [Concomitant]
     Active Substance: IBUPROFEN
     Indication: TOOTHACHE
  5. LORTAB [Concomitant]
     Active Substance: ACETAMINOPHEN\HYDROCODONE BITARTRATE
     Indication: MIGRAINE
     Dosage: UNK
     Dates: start: 201202, end: 201212
  6. MOTRIN [Concomitant]
     Active Substance: IBUPROFEN
     Indication: MIGRAINE
  7. LORTAB [Concomitant]
     Active Substance: ACETAMINOPHEN\HYDROCODONE BITARTRATE
     Indication: PELVIC PAIN
  8. MIRENA [Suspect]
     Active Substance: LEVONORGESTREL
     Indication: CONTRACEPTION
     Dosage: 20 MCG/24HR, CONT
     Route: 015
     Dates: start: 20120223, end: 20130515
  9. MIRENA [Suspect]
     Active Substance: LEVONORGESTREL
     Indication: CONTRACEPTION
     Dosage: UNK
  10. NAPROXEN. [Concomitant]
     Active Substance: NAPROXEN
     Indication: ABDOMINAL DISTENSION
     Dosage: UNK
     Dates: start: 201212, end: 201302
  11. ORTHO EVRA [Concomitant]
     Active Substance: ETHINYL ESTRADIOL\NORELGESTROMIN
     Dosage: UNK
     Dates: start: 201305

REACTIONS (15)
  - Uterine perforation [Not Recovered/Not Resolved]
  - Ovarian cyst [None]
  - Pelvic inflammatory disease [None]
  - Abdominal pain lower [None]
  - Anhedonia [None]
  - Injury [None]
  - General physical health deterioration [None]
  - Genital haemorrhage [None]
  - Weight increased [None]
  - Dyspareunia [None]
  - Emotional distress [None]
  - Pelvic pain [None]
  - Urinary incontinence [None]
  - Anxiety [None]
  - Abdominal distension [None]

NARRATIVE: CASE EVENT DATE: 201202
